FAERS Safety Report 6189168-7 (Version None)
Quarter: 2009Q2

REPORT INFORMATION
  Report Type: 
  Country: None (occurrence: None)
  Receive Date: 20090513
  Receipt Date: 20090410
  Transmission Date: 20091009
  Serious: No
  Sender: FDA-Public Use
  Company Number: A0778095A

PATIENT
  Sex: Male

DRUGS (1)
  1. TREXIMET [Suspect]
     Dosage: 2TAB SINGLE DOSE
     Route: 048
     Dates: start: 20090410

REACTIONS (3)
  - DIZZINESS [None]
  - INCORRECT DOSE ADMINISTERED [None]
  - NAUSEA [None]
